FAERS Safety Report 5787271-4 (Version None)
Quarter: 2008Q2

REPORT INFORMATION
  Report Type: 
  Country: None (occurrence: None)
  Receive Date: 20080625
  Receipt Date: 20080610
  Transmission Date: 20081010
  Serious: Yes (Hospitalization)
  Sender: FDA-Public Use
  Company Number: US-BAYER-US-2007-038211

PATIENT
  Age: 57 Year
  Sex: Female
  Weight: 77 kg

DRUGS (15)
  1. BETASERON [Suspect]
     Indication: SECONDARY PROGRESSIVE MULTIPLE SCLEROSIS
     Dosage: TOTAL DAILY DOSE: 2 MIU
     Route: 058
     Dates: start: 20070821
  2. BETASERON [Suspect]
     Dosage: TOTAL DAILY DOSE: 6 MIU
     Route: 058
  3. BETASERON [Suspect]
     Dosage: TOTAL DAILY DOSE: 8 MIU
     Route: 058
     Dates: end: 20071008
  4. BETASERON [Suspect]
     Dosage: TOTAL DAILY DOSE: 4 MIU
     Route: 058
     Dates: start: 20070901
  5. NEURONTIN [Concomitant]
  6. BACLOFEN [Concomitant]
  7. CYMBALTA [Concomitant]
  8. NEXIUM [Concomitant]
  9. PLAQUENIL [Concomitant]
  10. VOLTAREN [Concomitant]
  11. PATANOL [Concomitant]
  12. VITAMIN D [Concomitant]
     Indication: ARTHRITIS
  13. HERBAL MEDICATIONS [Concomitant]
  14. RESTASIS [Concomitant]
  15. NATURAL MEDICATIONS [Concomitant]

REACTIONS (7)
  - ABASIA [None]
  - DEHYDRATION [None]
  - DIARRHOEA [None]
  - DIZZINESS [None]
  - HEADACHE [None]
  - NAUSEA [None]
  - VOMITING [None]
